FAERS Safety Report 17463204 (Version 3)
Quarter: 2020Q3

REPORT INFORMATION
  Report Type: Spontaneous
  Country: JP (occurrence: JP)
  Receive Date: 20200226
  Receipt Date: 20200709
  Transmission Date: 20201102
  Serious: Yes (Life-Threatening)
  Sender: FDA-Public Use
  Company Number: JP-BAYER-2020-031262

PATIENT
  Age: 78 Year
  Sex: Male
  Weight: 54 kg

DRUGS (22)
  1. EFIENT [Concomitant]
     Active Substance: PRASUGREL HYDROCHLORIDE
     Dosage: DAILY DOSE 3.75 MG
  2. DOXAZOSIN [Concomitant]
     Active Substance: DOXAZOSIN MESYLATE
     Dosage: DAILY DOSE 2 MG
     Dates: end: 20200221
  3. TEGRETOL [Concomitant]
     Active Substance: CARBAMAZEPINE
  4. SULPIRIDE [Concomitant]
     Active Substance: SULPIRIDE
  5. SERMION [NICERGOLINE] [Concomitant]
  6. STIVARGA [Suspect]
     Active Substance: REGORAFENIB
     Indication: HEPATOCELLULAR CARCINOMA
     Dosage: DAILY DOSE 160 MG
     Route: 048
     Dates: start: 20200207, end: 20200210
  7. BISOPROLOL FUMARATE. [Suspect]
     Active Substance: BISOPROLOL FUMARATE
     Indication: HYPERTROPHIC CARDIOMYOPATHY
     Dosage: DAILY DOSE 2.5 MG
     Route: 048
     Dates: end: 20200220
  8. AZILVA [Concomitant]
     Active Substance: AZILSARTAN KAMEDOXOMIL
     Dosage: DAILY DOSE 20 MG
     Dates: start: 20200211
  9. LOXONIN [Concomitant]
     Active Substance: LOXOPROFEN SODIUM
     Dosage: DAILY DOSE 60 MG
  10. HACHIMIJIOGAN [Concomitant]
     Active Substance: HERBALS
  11. CAMSHIA [Concomitant]
     Active Substance: AMLODIPINE BESYLATE\CANDESARTAN CILEXETIL
     Dosage: UNK
     Dates: end: 20200207
  12. LOTRIGA [Concomitant]
     Active Substance: OMEGA-3-ACID ETHYL ESTERS
     Dosage: DAILY DOSE 2 G
  13. STIVARGA [Suspect]
     Active Substance: REGORAFENIB
     Indication: HEPATOCELLULAR CARCINOMA
     Dosage: DAILY DOSE 120 MG
     Route: 048
     Dates: start: 20200211, end: 20200216
  14. AZILVA [Concomitant]
     Active Substance: AZILSARTAN KAMEDOXOMIL
     Dosage: DAILY DOSE 10 MG
     Dates: start: 20200208
  15. AMLODIPINE [Concomitant]
     Active Substance: AMLODIPINE BESYLATE
     Dosage: DAILY DOSE 5 MG
     Dates: start: 20200208
  16. LANSOPRAZOLE. [Concomitant]
     Active Substance: LANSOPRAZOLE
     Dosage: DAILY DOSE 15 MG
  17. ROSUVASTATIN OD [Concomitant]
     Dosage: DAILY DOSE 2.5 MG
  18. CARBOCISTEINE [Concomitant]
     Active Substance: CARBOCYSTEINE
  19. LEXOTAN [Concomitant]
     Active Substance: BROMAZEPAM
  20. NIFEDIPINE. [Concomitant]
     Active Substance: NIFEDIPINE
     Dosage: DAILY DOSE 20 MG
  21. BAYASPIRIN 100 MG [Concomitant]
     Active Substance: ASPIRIN
     Dosage: DAILY DOSE 100 MG
  22. CYMBALTA [Concomitant]
     Active Substance: DULOXETINE HYDROCHLORIDE
     Dosage: DAILY DOSE 20 MG

REACTIONS (1)
  - Loss of consciousness [Recovering/Resolving]

NARRATIVE: CASE EVENT DATE: 20200217
